FAERS Safety Report 13090976 (Version 1)
Quarter: 2017Q1

REPORT INFORMATION
  Report Type: Spontaneous
  Country: US (occurrence: US)
  Receive Date: 20170106
  Receipt Date: 20170106
  Transmission Date: 20170428
  Serious: Yes (Death, Hospitalization)
  Sender: FDA-Public Use
  Company Number: US-JNJFOC-20161226003

PATIENT
  Age: 58 Year
  Sex: Male

DRUGS (2)
  1. DIPHENHYDRAMINE. [Suspect]
     Active Substance: DIPHENHYDRAMINE
     Indication: SUICIDE ATTEMPT
     Dosage: 3/4 OF THE BOTTLE
     Route: 048
  2. BENZALKONIUM CHLORIDE. [Suspect]
     Active Substance: BENZALKONIUM CHLORIDE
     Indication: SUICIDE ATTEMPT
     Dosage: 3 TO 4 OUNCES
     Route: 048

REACTIONS (5)
  - Oesophageal disorder [Fatal]
  - Toxicity to various agents [Fatal]
  - Laryngeal injury [Fatal]
  - Depressed level of consciousness [Fatal]
  - Renal failure [Fatal]
